FAERS Safety Report 5967288-7 (Version None)
Quarter: 2008Q4

REPORT INFORMATION
  Report Type: 
  Country: None (occurrence: None)
  Receive Date: 20081125
  Receipt Date: 20081107
  Transmission Date: 20090506
  Serious: Yes (Hospitalization)
  Sender: FDA-Public Use
  Company Number: US-MERCK-0811USA01246

PATIENT

DRUGS (2)
  1. JANUVIA [Suspect]
     Route: 048
  2. CORTICOSTEROIDS (UNSPECIFIED) [Concomitant]
     Route: 065

REACTIONS (3)
  - AUTOIMMUNE DISORDER [None]
  - AUTOIMMUNE THYROIDITIS [None]
  - IDIOPATHIC THROMBOCYTOPENIC PURPURA [None]
